FAERS Safety Report 13841872 (Version 2)
Quarter: 2017Q4

REPORT INFORMATION
  Report Type: Report from Study
  Country: US (occurrence: US)
  Receive Date: 20170807
  Receipt Date: 20171027
  Transmission Date: 20180320
  Serious: Yes (Other)
  Sender: FDA-Public Use
  Company Number: US-AMGEN-USASL2017056739

PATIENT
  Sex: Female

DRUGS (3)
  1. NPLATE [Suspect]
     Active Substance: ROMIPLOSTIM
     Indication: IMMUNE THROMBOCYTOPENIC PURPURA
     Dosage: Q2WK
     Route: 065
  2. PROMETHAZINE [Concomitant]
     Active Substance: PROMETHAZINE\PROMETHAZINE HYDROCHLORIDE
     Dosage: 25 MG, AS NECESSARY
  3. METOCLOPRAMIDE. [Concomitant]
     Active Substance: METOCLOPRAMIDE
     Dosage: 10 MG, AS NECESSARY

REACTIONS (10)
  - Oropharyngeal pain [Unknown]
  - Platelet count abnormal [Unknown]
  - Ephelides [Unknown]
  - Nasal congestion [Unknown]
  - Nausea [Unknown]
  - Gastrointestinal disorder [Unknown]
  - Petechiae [Not Recovered/Not Resolved]
  - Incontinence [Unknown]
  - Diarrhoea [Unknown]
  - Off label use [Unknown]
